FAERS Safety Report 9819283 (Version 1)
Quarter: 2014Q1

REPORT INFORMATION
  Report Type: Spontaneous
  Country: FR (occurrence: FR)
  Receive Date: 20140115
  Receipt Date: 20140115
  Transmission Date: 20141002
  Serious: Yes (Hospitalization)
  Sender: FDA-Public Use
  Company Number: FR-BAYER-2014-004276

PATIENT
  Age: 50 Year
  Sex: Female

DRUGS (1)
  1. NEXAVAR [Suspect]
     Indication: RENAL CANCER
     Dosage: 200 MG, UNK
     Route: 048
     Dates: start: 2007

REACTIONS (2)
  - Acute myeloid leukaemia [Recovered/Resolved]
  - Off label use [None]
